FAERS Safety Report 9406096 (Version 4)
Quarter: 2013Q3

REPORT INFORMATION
  Report Type: Spontaneous
  Country: US (occurrence: US)
  Receive Date: 20130717
  Receipt Date: 20130821
  Transmission Date: 20140515
  Serious: Yes (Death, Hospitalization, Other)
  Sender: FDA-Public Use
  Company Number: US-BAXTER-2013BAX026939

PATIENT
  Age: 82 Year
  Sex: Female

DRUGS (3)
  1. DIANEAL PD2 [Suspect]
     Indication: PERITONEAL DIALYSIS
     Route: 033
     Dates: start: 2012, end: 20130728
  2. DIANEAL PD2 [Suspect]
     Indication: PERITONEAL DIALYSIS
     Route: 033
     Dates: start: 2012, end: 20130728
  3. DIANEAL PD2 (ULTRABAG) [Suspect]
     Indication: PERITONEAL DIALYSIS
     Route: 033
     Dates: end: 20130728

REACTIONS (8)
  - Aspiration [Fatal]
  - Cardiac arrest [Fatal]
  - Disease complication [Fatal]
  - Cardiac failure [Fatal]
  - Fall [Recovering/Resolving]
  - Ankle fracture [Recovering/Resolving]
  - Arterial occlusive disease [Unknown]
  - Cerebrovascular accident [Unknown]
